FAERS Safety Report 6600854-4 (Version None)
Quarter: 2010Q1

REPORT INFORMATION
  Report Type: 
  Country: None (occurrence: None)
  Receive Date: 20100223
  Receipt Date: 20100223
  Transmission Date: 20100710
  Serious: No
  Sender: FDA-Public Use
  Company Number: None

PATIENT
  Age: 12 Year
  Sex: Female
  Weight: 49.1 kg

DRUGS (1)
  1. VERMOCKS TABLETAS PYRANTEL PAMOATE 144MG PROMEX [Suspect]
     Indication: ENTEROBIASIS
     Dosage: 1 TABLET TWICE A DAY 3 DAYS 3 DAYS
     Dates: start: 20100115

REACTIONS (2)
  - INAPPROPRIATE SCHEDULE OF DRUG ADMINISTRATION [None]
  - PRODUCT LABEL ISSUE [None]
